FAERS Safety Report 20680407 (Version 2)
Quarter: 2022Q4

REPORT INFORMATION
  Report Type: Spontaneous
  Country: DE (occurrence: DE)
  Receive Date: 20220406
  Receipt Date: 20221102
  Transmission Date: 20230112
  Serious: Yes (Other)
  Sender: FDA-Public Use
  Company Number: DE-BRISTOL-MYERS SQUIBB COMPANY-2022-011379

PATIENT
  Age: 81 Year

DRUGS (2)
  1. OPDIVO [Suspect]
     Active Substance: NIVOLUMAB
     Indication: Pleural mesothelioma malignant
     Dates: start: 202102
  2. YERVOY [Suspect]
     Active Substance: IPILIMUMAB
     Indication: Pleural mesothelioma malignant
     Dates: start: 202102

REACTIONS (4)
  - Pruritus [Recovered/Resolved with Sequelae]
  - Paresis [Recovering/Resolving]
  - Diarrhoea [Recovered/Resolved with Sequelae]
  - Bone marrow infiltration [Unknown]
